FAERS Safety Report 17809138 (Version 1)
Quarter: 2020Q2

REPORT INFORMATION
  Report Type: Spontaneous
  Country: PT (occurrence: PT)
  Receive Date: 20200520
  Receipt Date: 20200520
  Transmission Date: 20200714
  Serious: Yes (Other)
  Sender: FDA-Public Use
  Company Number: PT-BAUSCH-BL-2020-014663

PATIENT
  Age: 65 Year
  Sex: Female

DRUGS (2)
  1. VIRGAN [Suspect]
     Active Substance: GANCICLOVIR
     Indication: HERPES OPHTHALMIC
     Route: 047
     Dates: start: 20200506
  2. VIRGAN [Suspect]
     Active Substance: GANCICLOVIR
     Dosage: DOSE REDUCED
     Route: 047

REACTIONS (2)
  - Abdominal pain [Not Recovered/Not Resolved]
  - Diarrhoea [Not Recovered/Not Resolved]

NARRATIVE: CASE EVENT DATE: 20200506
